FAERS Safety Report 8120341-4 (Version None)
Quarter: 2012Q1

REPORT INFORMATION
  Report Type: 
  Country: None (occurrence: None)
  Receive Date: 20120207
  Receipt Date: 20120206
  Transmission Date: 20120608
  Serious: Yes (Hospitalization)
  Sender: FDA-Public Use
  Company Number: US-GLAXOSMITHKLINE-A0959917A

PATIENT
  Age: 48 Year
  Sex: Female

DRUGS (6)
  1. VITAMIN B6 [Concomitant]
  2. ALBUTEROL [Concomitant]
  3. SPECIFIC IMMUNE STIMULATION [Concomitant]
  4. SYNTHROID [Concomitant]
  5. LISINOPRIL [Concomitant]
  6. ADVAIR DISKUS 100/50 [Suspect]
     Indication: ASTHMA
     Dosage: 1PUFF PER DAY
     Route: 055
     Dates: start: 20060101

REACTIONS (6)
  - CHOKING [None]
  - FATIGUE [None]
  - COUGH [None]
  - DYSPNOEA [None]
  - TREATMENT NONCOMPLIANCE [None]
  - PRODUCT QUALITY ISSUE [None]
